FAERS Safety Report 24186912 (Version 1)
Quarter: 2024Q3

REPORT INFORMATION
  Report Type: Spontaneous
  Country: US (occurrence: US)
  Receive Date: 20240808
  Receipt Date: 20240808
  Transmission Date: 20241016
  Serious: No
  Sender: GRAVITI PHARMACEUTICALS
  Company Number: US-GRAVITIPHARMA-GRA-2405-US-SPO-0157

PATIENT
  Sex: Female

DRUGS (1)
  1. HYDROXYZINE HYDROCHLORIDE [Suspect]
     Active Substance: HYDROXYZINE HYDROCHLORIDE
     Indication: Anxiety
     Route: 048

REACTIONS (4)
  - Agitation [Recovering/Resolving]
  - Aggression [Recovering/Resolving]
  - Insomnia [Recovering/Resolving]
  - Maternal exposure during pregnancy [Unknown]
